FAERS Safety Report 18388878 (Version 1)
Quarter: 2020Q4

REPORT INFORMATION
  Report Type: Spontaneous
  Country: DE (occurrence: DE)
  Receive Date: 20201015
  Receipt Date: 20201015
  Transmission Date: 20210114
  Serious: Yes (Life-Threatening, Hospitalization, Other)
  Sender: FDA-Public Use
  Company Number: DE-ELI_LILLY_AND_COMPANY-DE202010004692

PATIENT
  Sex: Female
  Weight: 47 kg

DRUGS (6)
  1. KEYTRUDA [Suspect]
     Active Substance: PEMBROLIZUMAB
     Indication: NON-SMALL CELL LUNG CANCER
     Dosage: 200MG, FIRST DOSE, SECOND CYCLE
     Route: 065
     Dates: start: 20200703
  2. PEMETREXED. [Suspect]
     Active Substance: PEMETREXED
     Indication: NON-SMALL CELL LUNG CANCER
     Dosage: 500MG/M2
     Route: 065
     Dates: start: 20200608
  3. KEYTRUDA [Suspect]
     Active Substance: PEMBROLIZUMAB
     Dosage: 200MG, SECOND DOSE, THIRD CYCLE
     Route: 065
     Dates: start: 20200724
  4. KEYTRUDA [Suspect]
     Active Substance: PEMBROLIZUMAB
     Dosage: 200MG, THIRD DOSE, FOURTH CYCLE
     Route: 065
     Dates: start: 20200814
  5. CISPLATIN. [Suspect]
     Active Substance: CISPLATIN
     Indication: NON-SMALL CELL LUNG CANCER
     Dosage: AUC 5, FISRT CYCLE
     Route: 065
     Dates: start: 20200608
  6. AMOXICILLIN. [Suspect]
     Active Substance: AMOXICILLIN
     Indication: PROPHYLAXIS URINARY TRACT INFECTION
     Dosage: UNK, UNKNOWN
     Route: 065
     Dates: start: 20200827, end: 20200830

REACTIONS (15)
  - Blood alkaline phosphatase abnormal [Unknown]
  - Dyspnoea exertional [Unknown]
  - Paralysis recurrent laryngeal nerve [Unknown]
  - Blood glucose abnormal [Unknown]
  - Lip swelling [Unknown]
  - Duodenitis [Unknown]
  - Blood creatine abnormal [Unknown]
  - Anaemia [Unknown]
  - Vitamin B12 abnormal [Unknown]
  - Relapsing fever [Unknown]
  - Dysphonia [Unknown]
  - Swollen tongue [Unknown]
  - Stomatitis [Unknown]
  - Protein total normal [Unknown]
  - Stevens-Johnson syndrome [Unknown]

NARRATIVE: CASE EVENT DATE: 202008
